FAERS Safety Report 16076915 (Version 1)
Quarter: 2019Q2

REPORT INFORMATION
  Report Type: Spontaneous
  Country: US (occurrence: US)
  Receive Date: 20190314
  Receipt Date: 20190314
  Transmission Date: 20190711
  Serious: Yes (Life-Threatening, Hospitalization)
  Sender: FDA-Public Use
  Company Number: None

PATIENT
  Age: 40 Year
  Sex: Male
  Weight: 128.25 kg

DRUGS (1)
  1. METFORMIN [Suspect]
     Active Substance: METFORMIN HYDROCHLORIDE
     Indication: TYPE 2 DIABETES MELLITUS
     Dates: end: 20160721

REACTIONS (5)
  - Necrotising fasciitis [None]
  - Genital abscess [None]
  - Blood pressure decreased [None]
  - Testicular swelling [None]
  - Pyrexia [None]

NARRATIVE: CASE EVENT DATE: 20160721
